FAERS Safety Report 5335666-5 (Version None)
Quarter: 2007Q2

REPORT INFORMATION
  Report Type: 
  Country: None (occurrence: None)
  Receive Date: 20070322
  Receipt Date: 20061219
  Transmission Date: 20071010
  Serious: No
  Sender: FDA-Public Use
  Company Number: 2006US002932

PATIENT
  Age: 69 Year
  Sex: Male

DRUGS (1)
  1. VESLCARE (SOLIFENACIN) TABLET, 5MG [Suspect]
     Indication: DRUG USE FOR UNKNOWN INDICATION
     Dosage: 5MG, ORAL
     Route: 048
     Dates: start: 20061205

REACTIONS (1)
  - BLOOD GLUCOSE DECREASED [None]
